FAERS Safety Report 8984064 (Version 1)
Quarter: 2012Q4

REPORT INFORMATION
  Report Type: Spontaneous
  Country: US (occurrence: None)
  Receive Date: 20121219
  Receipt Date: 20121219
  Transmission Date: 20130627
  Serious: No
  Sender: FDA-Public Use
  Company Number: None

PATIENT

DRUGS (2)
  1. SERTRALINE [Suspect]
     Dosage: Tablet oral 25 mg
     Route: 048
  2. SERTRALINE [Suspect]
     Dosage: TABLET oral 50 mg
     Route: 048

REACTIONS (2)
  - Medication error [None]
  - Incorrect dose administered [None]
